FAERS Safety Report 9988281 (Version 1)
Quarter: 2014Q1

REPORT INFORMATION
  Report Type: Report from Study
  Country: CN (occurrence: CN)
  Receive Date: 20140310
  Receipt Date: 20140310
  Transmission Date: 20141002
  Serious: Yes (Other)
  Sender: FDA-Public Use
  Company Number: CN-ROCHE-1361516

PATIENT
  Age: 43 Year
  Sex: Male

DRUGS (3)
  1. PEGASYS [Suspect]
     Indication: HEPATITIS C
     Route: 058
     Dates: start: 20120629, end: 201210
  2. PEGASYS [Suspect]
     Route: 058
     Dates: start: 201210, end: 20130621
  3. RIBAVIRIN [Concomitant]
     Indication: HEPATITIS C
     Dosage: 10 DOSE FORMS PER DAY
     Route: 048
     Dates: start: 20120629, end: 20130621

REACTIONS (1)
  - White blood cell count decreased [Unknown]
